FAERS Safety Report 20912842 (Version 1)
Quarter: 2022Q2

REPORT INFORMATION
  Report Type: Spontaneous
  Country: US (occurrence: US)
  Receive Date: 20220603
  Receipt Date: 20220603
  Transmission Date: 20220720
  Serious: Yes (Other)
  Sender: FDA-Public Use
  Company Number: US-SA-SAC20220531001192

PATIENT
  Sex: Male

DRUGS (1)
  1. ARAVA [Suspect]
     Active Substance: LEFLUNOMIDE
     Indication: Multiple sclerosis
     Dosage: UNK

REACTIONS (14)
  - Multiple sclerosis relapse [Unknown]
  - Depression [Unknown]
  - Fatigue [Unknown]
  - Dysphagia [Unknown]
  - Hypoaesthesia [Unknown]
  - Muscular weakness [Unknown]
  - Muscle spasticity [Unknown]
  - Gastrointestinal disorder [Unknown]
  - Bladder disorder [Unknown]
  - Cognitive disorder [Unknown]
  - Condition aggravated [Unknown]
  - Infection [Unknown]
  - Anxiety [Unknown]
  - Product use in unapproved indication [Unknown]
